FAERS Safety Report 22032006 (Version 1)
Quarter: 2023Q1

REPORT INFORMATION
  Report Type: Other
  Country: CA (occurrence: CA)
  Receive Date: 20230224
  Receipt Date: 20230224
  Transmission Date: 20230417
  Serious: Yes (Other)
  Sender: FDA-Public Use
  Company Number: CA-APOTEX-2023AP003845

PATIENT
  Age: 83 Year
  Sex: Male

DRUGS (1)
  1. ABIRATERONE [Suspect]
     Active Substance: ABIRATERONE
     Indication: Hormone-refractory prostate cancer
     Dosage: 500 MILLIGRAM, QD
     Route: 048

REACTIONS (4)
  - Femur fracture [Unknown]
  - Off label use [Unknown]
  - Product dose omission issue [Unknown]
  - Fatigue [Unknown]
